FAERS Safety Report 15732491 (Version 1)
Quarter: 2018Q4

REPORT INFORMATION
  Report Type: Spontaneous
  Country: US (occurrence: US)
  Receive Date: 20181217
  Receipt Date: 20181217
  Transmission Date: 20190205
  Serious: No
  Sender: FDA-Public Use
  Company Number: US-VIFOR (INTERNATIONAL) INC.-VIT-2018-02521

PATIENT
  Sex: Male

DRUGS (13)
  1. VELTASSA [Suspect]
     Active Substance: PATIROMER
     Indication: HYPERKALAEMIA
     Route: 065
  2. ENTRESTO [Concomitant]
     Active Substance: SACUBITRIL\VALSARTAN
  3. FUROSEMIDE. [Concomitant]
     Active Substance: FUROSEMIDE
  4. ALLOPURINOL. [Concomitant]
     Active Substance: ALLOPURINOL
  5. OXYCODONE AND ACETAMINOPHEN [Concomitant]
     Active Substance: ACETAMINOPHEN\OXYCODONE HYDROCHLORIDE
  6. WARFARIN SODIUM. [Concomitant]
     Active Substance: WARFARIN SODIUM
  7. ASPIRIN. [Concomitant]
     Active Substance: ASPIRIN
  8. GLIPIZIDE. [Concomitant]
     Active Substance: GLIPIZIDE
  9. PRAVASTATIN SODIUM. [Concomitant]
     Active Substance: PRAVASTATIN SODIUM
  10. SENNA [Concomitant]
     Active Substance: SENNA LEAF\SENNOSIDES\SENNOSIDES A AND B
  11. SODIUM POLYSTYRENE SULFONATE. [Concomitant]
     Active Substance: SODIUM POLYSTYRENE SULFONATE
  12. METOPROLOL SUCCINATE. [Concomitant]
     Active Substance: METOPROLOL SUCCINATE
  13. LEVOTHYROXINE SODIUM. [Concomitant]
     Active Substance: LEVOTHYROXINE SODIUM

REACTIONS (1)
  - Adverse reaction [Unknown]
